FAERS Safety Report 11178349 (Version 4)
Quarter: 2016Q3

REPORT INFORMATION
  Report Type: Spontaneous
  Country: US (occurrence: US)
  Receive Date: 20150610
  Receipt Date: 20160822
  Transmission Date: 20161109
  Serious: No
  Sender: FDA-Public Use
  Company Number: US-GLAXOSMITHKLINE-US2015GSK079669

PATIENT
  Sex: Female
  Weight: 45.35 kg

DRUGS (13)
  1. ADVAIR DISKUS [Suspect]
     Active Substance: FLUTICASONE PROPIONATE\SALMETEROL XINAFOATE
     Dosage: 250/50 MCG
  2. CELEXA [Concomitant]
     Active Substance: CITALOPRAM HYDROBROMIDE
  3. VITAMIN C [Concomitant]
     Active Substance: ASCORBIC ACID
  4. ALBUTEROL SULFATE NEBULISER SOLUTION [Concomitant]
     Active Substance: ALBUTEROL SULFATE
  5. ADVAIR DISKUS [Suspect]
     Active Substance: FLUTICASONE PROPIONATE\SALMETEROL XINAFOATE
     Indication: CHRONIC OBSTRUCTIVE PULMONARY DISEASE
     Dosage: 2 PUFF(S), BID
     Route: 055
  6. ALEVE [Concomitant]
     Active Substance: NAPROXEN SODIUM
  7. LEVOTHYROXINE. [Concomitant]
     Active Substance: LEVOTHYROXINE
  8. ADVAIR DISKUS [Suspect]
     Active Substance: FLUTICASONE PROPIONATE\SALMETEROL XINAFOATE
     Dosage: 100/50 MCG
  9. BREO ELLIPTA [Suspect]
     Active Substance: FLUTICASONE FUROATE\VILANTEROL TRIFENATATE
     Indication: CHRONIC OBSTRUCTIVE PULMONARY DISEASE
  10. ALBUTEROL INHALATION POWDER [Concomitant]
     Active Substance: ALBUTEROL
  11. CELEBREX [Concomitant]
     Active Substance: CELECOXIB
  12. ACETAMINOPHEN TABLET [Concomitant]
     Active Substance: ACETAMINOPHEN
  13. VENTOLIN HFA [Concomitant]
     Active Substance: ALBUTEROL SULFATE
     Dosage: 2 PUFF(S), PRN

REACTIONS (12)
  - Dyspnoea [Unknown]
  - Anxiety [Unknown]
  - Surgery [Unknown]
  - Chronic obstructive pulmonary disease [Unknown]
  - Bronchospasm [Unknown]
  - Breath sounds abnormal [Unknown]
  - Mass [Unknown]
  - Condition aggravated [Unknown]
  - Malaise [Unknown]
  - Wheezing [Unknown]
  - Productive cough [Unknown]
  - Cough [Unknown]
